FAERS Safety Report 7546964-9 (Version None)
Quarter: 2011Q2

REPORT INFORMATION
  Report Type: 
  Country: None (occurrence: None)
  Receive Date: 20110607
  Receipt Date: 20110525
  Transmission Date: 20111010
  Serious: Yes (Disabling)
  Sender: FDA-Public Use
  Company Number: 2011AP001072

PATIENT
  Age: 68 Year
  Sex: Male

DRUGS (10)
  1. FLUOXETINE [Concomitant]
  2. BUDESONIDE [Concomitant]
  3. ALENDRONATE SODIUM [Suspect]
     Indication: PRODUCT USED FOR UNKNOWN INDICATION
     Dosage: PO
     Route: 048
     Dates: start: 20110516
  4. ACETYLSALICYLIC ACID (ACETYLSALICYLIC ACID) [Concomitant]
  5. CALCIUM CARBONATE [Concomitant]
  6. BUDESONIDE [Concomitant]
  7. SALBUTAMOL SULFATE (SALBUTAMOL SULFATE) [Concomitant]
  8. BISOPROLOL FUMARATE [Concomitant]
  9. ATORVASTATIN [Concomitant]
  10. TIOTROPIUM BROMIDE (TIOTROPIUM BROMIDE) [Concomitant]

REACTIONS (3)
  - ARTHRALGIA [None]
  - GROIN PAIN [None]
  - MYALGIA [None]
